FAERS Safety Report 6880989-1 (Version None)
Quarter: 2010Q2

REPORT INFORMATION
  Report Type: 
  Country: None (occurrence: None)
  Receive Date: 20100630
  Receipt Date: 20091215
  Transmission Date: 20101027
  Serious: Yes (Other)
  Sender: FDA-Public Use
  Company Number: DEP_00314_2009

PATIENT
  Age: 63 Year
  Sex: Male

DRUGS (4)
  1. CIPROFLOXACIN [Suspect]
     Indication: URINARY TRACT INFECTION
     Dosage: 9500 MG BID ORAL)
     Route: 048
  2. PROPANOLOL /0003001/ [Concomitant]
  3. ACETYLSALICYLIC ACID SRT [Concomitant]
  4. HYDROCHLOROTHIAZIDE [Concomitant]

REACTIONS (2)
  - ACUTE GENERALISED EXANTHEMATOUS PUSTULOSIS [None]
  - PHOTOSENSITIVITY REACTION [None]
